FAERS Safety Report 17363874 (Version 4)
Quarter: 2020Q1

REPORT INFORMATION
  Report Type: Spontaneous
  Country: CZ (occurrence: CZ)
  Receive Date: 20200203
  Receipt Date: 20200325
  Transmission Date: 20200409
  Serious: Yes (Life-Threatening, Hospitalization, Other)
  Sender: FDA-Public Use
  Company Number: CZ-BRISTOL-MYERS SQUIBB COMPANY-BMS-2020-008330

PATIENT
  Age: 72 Year
  Sex: Male
  Weight: 145 kg

DRUGS (1)
  1. ELIQUIS [Suspect]
     Active Substance: APIXABAN
     Indication: CEREBROVASCULAR ACCIDENT PROPHYLAXIS
     Dosage: 2.5 MILLIGRAM, BID
     Route: 065
     Dates: end: 202001

REACTIONS (4)
  - Epistaxis [Recovered/Resolved]
  - Cardiac failure chronic [Recovering/Resolving]
  - Prescribed underdose [Unknown]
  - Lacrimal haemorrhage [Recovered/Resolved]

NARRATIVE: CASE EVENT DATE: 20200116
